FAERS Safety Report 25436887 (Version 1)
Quarter: 2025Q2

REPORT INFORMATION
  Report Type: Spontaneous
  Country: US (occurrence: US)
  Receive Date: 20250615
  Receipt Date: 20250615
  Transmission Date: 20250717
  Serious: No
  Sender: ALEXION PHARMACEUTICALS
  Company Number: US-AstraZeneca-CH-00888138AP

PATIENT

DRUGS (1)
  1. SYMBICORT AEROSPHERE [Suspect]
     Active Substance: BUDESONIDE\FORMOTEROL FUMARATE
     Dosage: 160 MICROGRAM, BID
     Route: 065

REACTIONS (4)
  - Hypersensitivity [Unknown]
  - Productive cough [Unknown]
  - Dyspnoea [Unknown]
  - Product dose omission issue [Unknown]
